FAERS Safety Report 4633338-3 (Version None)
Quarter: 2005Q2

REPORT INFORMATION
  Report Type: 
  Country: None (occurrence: None)
  Receive Date: 20050408
  Receipt Date: 20050324
  Transmission Date: 20051028
  Serious: Yes (Other)
  Sender: FDA-Public Use
  Company Number: ACO-0127_2005

PATIENT
  Age: 27 Year
  Sex: Male

DRUGS (5)
  1. TERNELIN [Suspect]
     Indication: BACK PAIN
     Dosage: PO
     Route: 048
     Dates: start: 20040901, end: 20050107
  2. PEON [Suspect]
     Indication: BACK PAIN
     Dates: start: 20040901, end: 20050107
  3. MARZULENE S [Suspect]
     Indication: GASTRITIS
     Dates: start: 20040901, end: 20050107
  4. DAN RICH [Suspect]
     Indication: NASOPHARYNGITIS
  5. OVER-THE - COUNTER ANTITUSSIVES (NOS) [Suspect]

REACTIONS (6)
  - GENERALISED ERYTHEMA [None]
  - LYMPHOCYTE STIMULATION TEST POSITIVE [None]
  - PIGMENTATION DISORDER [None]
  - RASH [None]
  - TOXIC SKIN ERUPTION [None]
  - URTICARIA [None]
